FAERS Safety Report 6980591-7 (Version None)
Quarter: 2010Q3

REPORT INFORMATION
  Report Type: 
  Country: None (occurrence: None)
  Receive Date: 20100914
  Receipt Date: 20100906
  Transmission Date: 20110219
  Serious: Yes (Hospitalization)
  Sender: FDA-Public Use
  Company Number: FR-B.I. PHARMACEUTICALS,INC./RIDGEFIELD-2010-BP-08630YA

PATIENT
  Sex: Male

DRUGS (4)
  1. TAMSULOSIN HCL [Suspect]
     Indication: BENIGN PROSTATIC HYPERPLASIA
  2. INFLUENZA VACCIN (INFLUENZA VACCINE) [Suspect]
     Route: 030
     Dates: start: 20091127, end: 20091127
  3. ESOMEPRAZOL (ESOMEPRAZOLE) [Suspect]
     Indication: GASTROOESOPHAGEAL REFLUX DISEASE
     Route: 048
  4. INEGY (EZETIMIBE, SIMVASTATIN) [Suspect]
     Indication: HYPERCHOLESTEROLAEMIA
     Route: 048

REACTIONS (7)
  - ASTHMA [None]
  - COUGH [None]
  - DYSPNOEA EXERTIONAL [None]
  - EOSINOPHILIA [None]
  - EOSINOPHILIC PNEUMONIA CHRONIC [None]
  - RESTRICTIVE PULMONARY DISEASE [None]
  - SINUSITIS [None]
